FAERS Safety Report 7343551-2 (Version None)
Quarter: 2011Q1

REPORT INFORMATION
  Report Type: 
  Country: None (occurrence: None)
  Receive Date: 20110310
  Receipt Date: 20100506
  Transmission Date: 20110831
  Serious: No
  Sender: FDA-Public Use
  Company Number: A0858457A

PATIENT
  Age: 43 Year
  Sex: Female

DRUGS (1)
  1. NICORETTE (MINT) [Suspect]
     Dates: start: 20100429, end: 20100503

REACTIONS (8)
  - DIARRHOEA [None]
  - FAECES DISCOLOURED [None]
  - POOR QUALITY SLEEP [None]
  - ABDOMINAL PAIN UPPER [None]
  - PROCTALGIA [None]
  - HICCUPS [None]
  - FLATULENCE [None]
  - ANORECTAL DISCOMFORT [None]
